FAERS Safety Report 7023715-8 (Version None)
Quarter: 2010Q4

REPORT INFORMATION
  Report Type: 
  Country: None (occurrence: None)
  Receive Date: 20101001
  Receipt Date: 20100921
  Transmission Date: 20110411
  Serious: Yes (Other)
  Sender: FDA-Public Use
  Company Number: US-CELGENEUS-163-21880-09110618

PATIENT
  Sex: Male

DRUGS (10)
  1. REVLIMID [Suspect]
     Indication: MULTIPLE MYELOMA
     Route: 048
     Dates: start: 20090129, end: 20091022
  2. REVLIMID [Suspect]
     Route: 048
     Dates: start: 20091201, end: 20091210
  3. MELPHALAN HYDROCHLORIDE [Suspect]
     Indication: PRODUCT USED FOR UNKNOWN INDICATION
     Route: 065
     Dates: start: 20030101
  4. MELPHALAN HYDROCHLORIDE [Suspect]
     Route: 065
     Dates: start: 20080101
  5. CYTOXAN [Suspect]
     Indication: PRODUCT USED FOR UNKNOWN INDICATION
     Route: 065
     Dates: start: 20080801
  6. CLARITHROMYCIN [Concomitant]
     Indication: MULTIPLE MYELOMA
     Route: 065
  7. INTERFERON [Concomitant]
     Indication: MULTIPLE MYELOMA
     Route: 065
  8. VELCADE [Concomitant]
     Indication: MULTIPLE MYELOMA
     Route: 065
  9. DOXIL [Concomitant]
     Indication: MULTIPLE MYELOMA
     Route: 065
  10. WARFARIN SODIUM [Concomitant]
     Indication: PRODUCT USED FOR UNKNOWN INDICATION
     Route: 065

REACTIONS (1)
  - 5Q MINUS SYNDROME [None]
